FAERS Safety Report 18458814 (Version 1)
Quarter: 2020Q4

REPORT INFORMATION
  Report Type: Spontaneous
  Country: BE (occurrence: BE)
  Receive Date: 20201103
  Receipt Date: 20201103
  Transmission Date: 20210114
  Serious: Yes (Other)
  Sender: FDA-Public Use
  Company Number: BE-NOVOPROD-759951

PATIENT
  Sex: Female
  Weight: 71.4 kg

DRUGS (11)
  1. FIASP [Suspect]
     Active Substance: INSULIN ASPART
     Indication: TYPE 1 DIABETES MELLITUS
     Dosage: UNK
     Route: 058
     Dates: start: 202004, end: 202007
  2. INDAPAMIDE. [Concomitant]
     Active Substance: INDAPAMIDE
     Dosage: 0.5
     Route: 048
  3. NOVORAPID [Suspect]
     Active Substance: INSULIN ASPART
     Indication: TYPE 1 DIABETES MELLITUS
     Dosage: UNK
     Route: 058
     Dates: start: 202009, end: 20201019
  4. HYDRALAZINE [Concomitant]
     Active Substance: HYDRALAZINE HYDROCHLORIDE
     Dosage: 25 MG, QD
     Route: 048
  5. INDAPAMIDE. [Concomitant]
     Active Substance: INDAPAMIDE
     Dosage: 2.50 MG, QD
     Route: 048
  6. OLMETEC PLUS [Concomitant]
     Active Substance: HYDROCHLOROTHIAZIDE\OLMESARTAN MEDOXOMIL
     Dosage: 40/12.5 QD
     Route: 048
  7. SUPRADYN [MINERALS NOS;VITAMINS NOS] [Concomitant]
     Dosage: UNK
     Route: 048
  8. NEBIVOLOL. [Concomitant]
     Active Substance: NEBIVOLOL
     Dosage: 5 MG, QD
     Route: 048
  9. D PEARLS [Concomitant]
     Dosage: UNK
     Route: 048
  10. LERCANIDIPINE [Concomitant]
     Active Substance: LERCANIDIPINE
     Dosage: 10 MG, BID
     Route: 048
  11. NAHCO3 [Concomitant]
     Active Substance: SODIUM BICARBONATE
     Dosage: 1 G, TID
     Route: 048

REACTIONS (4)
  - Infusion site erythema [Recovering/Resolving]
  - Infusion site pain [Recovering/Resolving]
  - Infusion site pruritus [Recovering/Resolving]
  - Infusion site vesicles [Recovering/Resolving]

NARRATIVE: CASE EVENT DATE: 202004
